FAERS Safety Report 4268288-8 (Version None)
Quarter: 2004Q1

REPORT INFORMATION
  Report Type: 
  Country: None (occurrence: None)
  Receive Date: 20040108
  Receipt Date: 20031226
  Transmission Date: 20041129
  Serious: Yes (Hospitalization)
  Sender: FDA-Public Use
  Company Number: FABR-10412

PATIENT
  Age: 81 Year
  Sex: Male
  Weight: 53 kg

DRUGS (16)
  1. FABRAZYME [Suspect]
     Indication: FABRY'S DISEASE
     Dosage: 53 MG Q2WKS IV
     Route: 042
     Dates: start: 20010321
  2. HYDROXYZINE [Concomitant]
  3. ACETAMINOPHEN [Concomitant]
  4. CARVEDILOL [Concomitant]
  5. SODIUM ALGINATE [Concomitant]
  6. OMEPRAZOLE [Concomitant]
  7. DIFLUCORTOLONE VALERATE LIDOCAINE [Concomitant]
  8. ENALAPRIL MALEATE [Concomitant]
  9. ASPIRIN [Concomitant]
  10. SPIRONOLACTONE [Concomitant]
  11. UREA [Concomitant]
  12. AZULENE [Concomitant]
  13. NICORANDIL [Concomitant]
  14. FUROSEMIDE [Concomitant]
  15. PIMOBENDAN [Concomitant]
  16. HYDROXYZINE PAMAOTE [Concomitant]

REACTIONS (1)
  - PNEUMONIA [None]
